FAERS Safety Report 6219282-9 (Version None)
Quarter: 2009Q2

REPORT INFORMATION
  Report Type: 
  Country: None (occurrence: None)
  Receive Date: 20090609
  Receipt Date: 20090528
  Transmission Date: 20091009
  Serious: Yes (Death, Other)
  Sender: FDA-Public Use
  Company Number: JP-ELI_LILLY_AND_COMPANY-JP200904001907

PATIENT
  Sex: Male
  Weight: 65 kg

DRUGS (3)
  1. GEMZAR [Suspect]
     Indication: BILE DUCT CANCER RECURRENT
     Dosage: 1400 MG, UNK
     Route: 042
     Dates: start: 20090318, end: 20090325
  2. VOLTAREN [Concomitant]
     Indication: PAIN
     Dosage: 25 MG, AS NEEDED
     Route: 054
     Dates: start: 20090305, end: 20090401
  3. LOXONIN [Concomitant]
     Indication: PAIN
     Dosage: 60 MG, AS NEEDED
     Route: 048
     Dates: start: 20090305, end: 20090401

REACTIONS (5)
  - HAEMOGLOBIN DECREASED [None]
  - INTERSTITIAL LUNG DISEASE [None]
  - MULTI-ORGAN DISORDER [None]
  - PLATELET COUNT DECREASED [None]
  - WHITE BLOOD CELL COUNT DECREASED [None]
